FAERS Safety Report 10479020 (Version 1)
Quarter: 2014Q3

REPORT INFORMATION
  Report Type: Spontaneous
  Country: US (occurrence: US)
  Receive Date: 20140926
  Receipt Date: 20140926
  Transmission Date: 20150326
  Serious: No
  Sender: FDA-Public Use
  Company Number: US-BAYER-2014-136481

PATIENT
  Age: 40 Year
  Sex: Female
  Weight: 74.83 kg

DRUGS (3)
  1. MULTIVITAMIN [Concomitant]
     Active Substance: VITAMINS
     Dosage: UNK
  2. MIDOL [Suspect]
     Active Substance: IBUPROFEN
     Indication: DYSMENORRHOEA
     Dosage: 1-2 DF, PRN
     Route: 048
     Dates: start: 2013, end: 2013
  3. MIDOL [Suspect]
     Active Substance: IBUPROFEN
     Indication: DYSMENORRHOEA
     Dosage: 1 DF, PRN
     Route: 048

REACTIONS (3)
  - Dysmenorrhoea [Recovered/Resolved]
  - Therapeutic response changed [Unknown]
  - Drug ineffective [None]
